FAERS Safety Report 7750966-7 (Version None)
Quarter: 2011Q3

REPORT INFORMATION
  Report Type: 
  Country: None (occurrence: None)
  Receive Date: 20110914
  Receipt Date: 20110902
  Transmission Date: 20111222
  Serious: Yes (Other)
  Sender: FDA-Public Use
  Company Number: GB-GENZYME-CLOF-1001479

PATIENT
  Sex: Male

DRUGS (2)
  1. EVOLTRA [Suspect]
     Indication: ACUTE MYELOID LEUKAEMIA
     Dosage: 36 MG, QD, COURSE 2
     Route: 042
     Dates: start: 20110124, end: 20110128
  2. DAUNORUBICIN HCL [Suspect]
     Indication: ACUTE MYELOID LEUKAEMIA
     Dosage: 90 MG, QD, COURSE 2
     Route: 042
     Dates: start: 20110124, end: 20110128

REACTIONS (1)
  - NEUROPATHY PERIPHERAL [None]
